FAERS Safety Report 10045227 (Version 1)
Quarter: 2014Q1

REPORT INFORMATION
  Report Type: Spontaneous
  Country: NL (occurrence: NL)
  Receive Date: 20140328
  Receipt Date: 20140328
  Transmission Date: 20141002
  Serious: Yes (Hospitalization)
  Sender: FDA-Public Use
  Company Number: NL-BRISTOL-MYERS SQUIBB COMPANY-20548111

PATIENT
  Age: 72 Year
  Sex: Male
  Weight: 96 kg

DRUGS (4)
  1. PRAVASTATIN SODIUM [Suspect]
     Indication: BLOOD CHOLESTEROL
     Route: 048
     Dates: start: 2011
  2. SIMVASTATIN [Suspect]
     Indication: BLOOD CHOLESTEROL
     Dates: start: 2011
  3. BISOPROLOL [Concomitant]
     Dates: start: 2007
  4. PERINDOPRIL [Concomitant]
     Dates: start: 2007

REACTIONS (2)
  - Phimosis [Recovered/Resolved]
  - Musculoskeletal stiffness [Unknown]
